FAERS Safety Report 15731188 (Version 9)
Quarter: 2022Q2

REPORT INFORMATION
  Report Type: Report from Study
  Country: CN (occurrence: CN)
  Receive Date: 20181217
  Receipt Date: 20220412
  Transmission Date: 20220721
  Serious: Yes (Hospitalization, Other)
  Sender: FDA-Public Use
  Company Number: CN-BRISTOL-MYERS SQUIBB COMPANY-BMS-2018-116449

PATIENT
  Age: 72 Year
  Sex: Male
  Weight: 59 kg

DRUGS (32)
  1. IPILIMUMAB [Suspect]
     Active Substance: IPILIMUMAB
     Indication: Oesophageal squamous cell carcinoma
     Dosage: MOST RECENT DOSE ON 18-SEP-2018
     Route: 042
     Dates: start: 20180519, end: 20180918
  2. JIN HOU JIAN SPRAY [Concomitant]
     Indication: Product used for unknown indication
     Dosage: 1 DOSAGE FORM= 20 UNITS NOS
     Route: 048
     Dates: start: 20181206, end: 20181206
  3. ENTERAL NUTRITIONAL POWDER(TP) [Concomitant]
     Indication: Product used for unknown indication
     Dosage: 30 MILLIGRAM
     Route: 048
     Dates: start: 20181104, end: 20181126
  4. OLANZAPINE [Concomitant]
     Active Substance: OLANZAPINE
     Indication: Product used for unknown indication
     Dosage: 5 MILLIGRAM
     Route: 048
     Dates: start: 20181206, end: 20181206
  5. OLANZAPINE [Concomitant]
     Active Substance: OLANZAPINE
     Dosage: 10 MILLIGRAM
     Route: 048
     Dates: start: 20181207, end: 20181208
  6. LEVOTHYROXINE SODIUM [Concomitant]
     Active Substance: LEVOTHYROXINE SODIUM
     Indication: Product used for unknown indication
     Route: 048
     Dates: start: 20181102, end: 20181129
  7. LEVOTHYROXINE SODIUM [Concomitant]
     Active Substance: LEVOTHYROXINE SODIUM
     Dosage: 125 MICROGRAM
     Route: 048
     Dates: start: 20181130, end: 20181218
  8. CALCIUM CARBONATE [Concomitant]
     Active Substance: CALCIUM CARBONATE
     Indication: Product used for unknown indication
     Dosage: 500 MILLIGRAM
     Route: 048
     Dates: start: 20181207, end: 20181207
  9. FAMOTIDINE [Concomitant]
     Active Substance: FAMOTIDINE
     Indication: Product used for unknown indication
     Dosage: 40 MILLIGRAM
     Route: 048
     Dates: start: 20181109, end: 20181127
  10. FAMOTIDINE [Concomitant]
     Active Substance: FAMOTIDINE
     Dosage: 20 MILLIGRAM
     Route: 048
     Dates: start: 20181207, end: 20181207
  11. SULFAMETHOXAZOLE [Concomitant]
     Active Substance: SULFAMETHOXAZOLE
     Indication: Product used for unknown indication
     Dosage: 1 DOSAGE FORM - 1 UNIT NOS
     Route: 048
     Dates: start: 20181112, end: 20190528
  12. ACYCLOVIR [Concomitant]
     Active Substance: ACYCLOVIR
     Indication: Product used for unknown indication
     Dosage: 0.2 GRAM
     Route: 048
     Dates: start: 20181207, end: 20181207
  13. MANNITOL [Concomitant]
     Active Substance: MANNITOL
     Indication: Product used for unknown indication
     Dosage: 1 DOSAGE FORM - 250 UNIT NOS
     Route: 042
     Dates: start: 20181207, end: 20181207
  14. NIFEDIPINE [Concomitant]
     Active Substance: NIFEDIPINE
     Indication: Product used for unknown indication
     Dosage: 20 MILLIGRAM
     Route: 048
  15. METOPROLOL TARTRATE [Concomitant]
     Active Substance: METOPROLOL TARTRATE
     Indication: Product used for unknown indication
     Dosage: 12.5 MILLIGRAM
     Route: 048
  16. PHOSPHOLIPID [Concomitant]
     Active Substance: PHOSPHOLIPID
     Indication: Hepatic function abnormal
     Dosage: 456 MILLIGRAM
     Route: 048
     Dates: start: 20181204, end: 20181204
  17. PHOSPHOLIPID [Concomitant]
     Active Substance: PHOSPHOLIPID
     Dosage: 684 MILLIGRAM
     Route: 048
     Dates: start: 20181205, end: 20181207
  18. PHOSPHOLIPID [Concomitant]
     Active Substance: PHOSPHOLIPID
     Dosage: 456 MILLIGRAM
     Route: 048
     Dates: start: 20181208, end: 20181208
  19. PHOSPHOLIPID [Concomitant]
     Active Substance: PHOSPHOLIPID
     Dosage: 1368 MILLIGRAM
     Route: 048
     Dates: start: 20181211
  20. HERBALS\DIAMMONIUM GLYCYRRHIZINATE [Concomitant]
     Active Substance: HERBALS\DIAMMONIUM GLYCYRRHIZINATE
     Indication: Hepatic function abnormal
     Dosage: 100 MILLIGRAM
     Route: 048
     Dates: start: 20181204, end: 20181204
  21. HERBALS\DIAMMONIUM GLYCYRRHIZINATE [Concomitant]
     Active Substance: HERBALS\DIAMMONIUM GLYCYRRHIZINATE
     Dosage: 150 MILLIGRAM
     Route: 048
     Dates: start: 20181205, end: 20181207
  22. HERBALS\DIAMMONIUM GLYCYRRHIZINATE [Concomitant]
     Active Substance: HERBALS\DIAMMONIUM GLYCYRRHIZINATE
     Dosage: 100 MILLIGRAM
     Route: 048
     Dates: start: 20181208, end: 20181208
  23. HERBALS\DIAMMONIUM GLYCYRRHIZINATE [Concomitant]
     Active Substance: HERBALS\DIAMMONIUM GLYCYRRHIZINATE
     Dosage: 150 MILLIGRAM
     Route: 048
     Dates: start: 20181209, end: 20181211
  24. PREDNISONE ACETATE [Concomitant]
     Active Substance: PREDNISONE ACETATE
     Indication: Product used for unknown indication
     Dosage: 20 MILLIGRAM
     Route: 048
     Dates: start: 20181120, end: 20181129
  25. PREDNISONE ACETATE [Concomitant]
     Active Substance: PREDNISONE ACETATE
     Dosage: 15 MILLIGRAM
     Route: 048
     Dates: start: 20181130, end: 20181205
  26. PREDNISONE ACETATE [Concomitant]
     Active Substance: PREDNISONE ACETATE
     Dosage: 20 MILLIGRAM
     Route: 048
     Dates: start: 20181205, end: 20181206
  27. PREDNISONE ACETATE [Concomitant]
     Active Substance: PREDNISONE ACETATE
     Dosage: 20 MILLIGRAM
     Route: 048
     Dates: start: 20181206, end: 20181207
  28. DOMPERIDONE [Concomitant]
     Active Substance: DOMPERIDONE
     Indication: Product used for unknown indication
     Dosage: 30 MILLIGRAM
     Route: 048
     Dates: start: 20181112, end: 20181126
  29. DIAZEPAM [Concomitant]
     Active Substance: DIAZEPAM
     Indication: Product used for unknown indication
     Dosage: 5 MILLIGRAM
     Route: 042
     Dates: start: 20181207, end: 20181207
  30. METHYLPREDNISOLONE SODIUM SUCCINATE [Concomitant]
     Active Substance: METHYLPREDNISOLONE SODIUM SUCCINATE
     Indication: Product used for unknown indication
     Dosage: 60 MILLIGRAM
     Route: 042
     Dates: start: 20181207, end: 20181210
  31. GLYCERIN [Concomitant]
     Active Substance: GLYCERIN
     Indication: Product used for unknown indication
     Dosage: 1 DOSAGE FORM = 110 UNITS
     Route: 043
     Dates: start: 20181205, end: 20181205
  32. SODIUM CHLORIDE andamp; DEXTROSE [Concomitant]
     Indication: Product used for unknown indication
     Dosage: 1 DOSAGE FORM = 1000 UNITS NOS
     Route: 042
     Dates: start: 20181207, end: 20181207

REACTIONS (1)
  - Immune-mediated encephalopathy [Recovered/Resolved]

NARRATIVE: CASE EVENT DATE: 20181207
